FAERS Safety Report 22657800 (Version 1)
Quarter: 2023Q2

REPORT INFORMATION
  Report Type: Report from Study
  Country: US (occurrence: US)
  Receive Date: 20230630
  Receipt Date: 20230630
  Transmission Date: 20230722
  Serious: Yes (Other)
  Sender: FDA-Public Use
  Company Number: US-002147023-NVSC2023US147989

PATIENT
  Sex: Male

DRUGS (2)
  1. ENTRESTO [Suspect]
     Active Substance: SACUBITRIL\VALSARTAN
     Indication: Product used for unknown indication
     Dosage: UNK, (TAKES LOWER DOSE IN THE MORNING AND HIGHER DOSE IN THE EVENING. STARTED A COUPLE MONTHS AGO)
     Route: 065
  2. LOPRESSOR [Suspect]
     Active Substance: METOPROLOL TARTRATE
     Indication: Product used for unknown indication
     Dosage: UNK
     Route: 065

REACTIONS (8)
  - Myocardial infarction [Unknown]
  - Prostate cancer [Unknown]
  - Gait inability [Unknown]
  - Insomnia [Unknown]
  - Hypertension [Unknown]
  - Limb discomfort [Unknown]
  - Back disorder [Unknown]
  - Cough [Unknown]
